FAERS Safety Report 9646526 (Version 1)
Quarter: 2013Q4

REPORT INFORMATION
  Report Type: Spontaneous
  Country: GB (occurrence: GB)
  Receive Date: 20131025
  Receipt Date: 20131025
  Transmission Date: 20140711
  Serious: Yes (Other)
  Sender: FDA-Public Use
  Company Number: PHHY2013GB117432

PATIENT
  Age: 55 Year
  Sex: Male

DRUGS (2)
  1. SALBUTAMOL [Suspect]
  2. BECLOMETASONE [Concomitant]

REACTIONS (4)
  - Loss of consciousness [Recovered/Resolved]
  - Heart rate decreased [Recovered/Resolved]
  - Oxygen saturation decreased [Recovered/Resolved]
  - Drug ineffective [Unknown]
